FAERS Safety Report 4309571-7 (Version None)
Quarter: 2004Q1

REPORT INFORMATION
  Report Type: 
  Country: None (occurrence: None)
  Receive Date: 20040301
  Receipt Date: 20040216
  Transmission Date: 20041129
  Serious: Yes (Death)
  Sender: FDA-Public Use
  Company Number: 04P-044-0249744-00

PATIENT
  Age: 51 Year
  Sex: Male
  Weight: 75 kg

DRUGS (4)
  1. BIAXIN [Suspect]
     Dosage: 500 MG
     Dates: start: 20031223, end: 20031223
  2. METOPROLOL SUCCINATE [Concomitant]
  3. ALBYL-ENTEROSOLUBILE [Concomitant]
  4. SIMVASTATIN [Concomitant]

REACTIONS (2)
  - CARDIAC FAILURE [None]
  - SEPSIS [None]
